FAERS Safety Report 11218218 (Version 1)
Quarter: 2015Q2

REPORT INFORMATION
  Report Type: Report from Study
  Country: KR (occurrence: KR)
  Receive Date: 20150625
  Receipt Date: 20150625
  Transmission Date: 20150821
  Serious: No
  Sender: FDA-Public Use
  Company Number: PHHY2015KR040454

PATIENT
  Age: 47 Year
  Sex: Female

DRUGS (5)
  1. SYNTHYROXINE [Concomitant]
     Indication: HYPOTHYROIDISM
     Dosage: 50 UG,
     Route: 048
  2. AMN107 [Suspect]
     Active Substance: NILOTINIB
     Indication: CHRONIC MYELOID LEUKAEMIA
     Dosage: 600 MG, QD
     Route: 048
     Dates: start: 20130924
  3. JURNISTA [Concomitant]
     Active Substance: HYDROMORPHONE HYDROCHLORIDE
     Indication: PAIN
     Dosage: 10 MG,
     Route: 048
     Dates: start: 20131107, end: 20131118
  4. HERBEN [Concomitant]
     Indication: HYPERTENSION
     Dosage: 180 MG,
     Route: 048
     Dates: start: 20130415
  5. ASPIRIN. [Concomitant]
     Active Substance: ASPIRIN
     Indication: HYPERTENSION
     Dosage: 100 MG,
     Route: 048
     Dates: start: 20130414

REACTIONS (1)
  - Rash [Recovered/Resolved]

NARRATIVE: CASE EVENT DATE: 20131007
